FAERS Safety Report 15651601 (Version 2)
Quarter: 2019Q1

REPORT INFORMATION
  Report Type: Spontaneous
  Country: UA (occurrence: UA)
  Receive Date: 20181123
  Receipt Date: 20190204
  Transmission Date: 20190417
  Serious: Yes (Other)
  Sender: FDA-Public Use
  Company Number: PHHY2018UA157680

PATIENT
  Age: 22 Year
  Sex: Female

DRUGS (8)
  1. DEXAMETHASONE. [Suspect]
     Active Substance: DEXAMETHASONE
     Indication: ENCEPHALITIS
     Route: 065
  2. DEXAMETHASONE. [Suspect]
     Active Substance: DEXAMETHASONE
     Indication: HERPES SIMPLEX
  3. ADEMETIONINE [Suspect]
     Active Substance: ADEMETIONINE
     Indication: ENCEPHALITIS
     Route: 065
  4. ACICLOVIR [Suspect]
     Active Substance: ACYCLOVIR
     Indication: ENCEPHALITIS
     Route: 065
  5. ACICLOVIR [Suspect]
     Active Substance: ACYCLOVIR
     Indication: HERPES SIMPLEX
  6. ADEMETIONINE [Suspect]
     Active Substance: ADEMETIONINE
     Indication: HERPES SIMPLEX
  7. CEFOPERAZONE + SULBACTAM [Suspect]
     Active Substance: CEFOPERAZONE SODIUM\SULBACTAM
     Indication: ENCEPHALITIS
     Route: 065
  8. CEFOPERAZONE + SULBACTAM [Suspect]
     Active Substance: CEFOPERAZONE SODIUM\SULBACTAM
     Indication: HERPES SIMPLEX

REACTIONS (3)
  - Condition aggravated [Recovering/Resolving]
  - Meningoencephalitis herpetic [Recovering/Resolving]
  - Blood glucose decreased [Recovering/Resolving]
